FAERS Safety Report 5682500-X (Version None)
Quarter: 2008Q1

REPORT INFORMATION
  Report Type: 
  Country: None (occurrence: None)
  Receive Date: 20080326
  Receipt Date: 20080326
  Transmission Date: 20080703
  Serious: Yes (Disabling)
  Sender: FDA-Public Use
  Company Number: None

PATIENT
  Age: 67 Year
  Sex: Male
  Weight: 112.5 kg

DRUGS (1)
  1. HYDROXYCHLOROQUINE [Suspect]
     Indication: SJOGREN'S SYNDROME
     Dosage: 200MG BID PO
     Route: 048
     Dates: start: 20040126, end: 20070702

REACTIONS (1)
  - DEAFNESS UNILATERAL [None]
